FAERS Safety Report 5141269-8 (Version None)
Quarter: 2006Q4

REPORT INFORMATION
  Report Type: 
  Country: None (occurrence: None)
  Receive Date: 20061101
  Receipt Date: 20061019
  Transmission Date: 20070319
  Serious: Yes (Death, Other)
  Sender: FDA-Public Use
  Company Number: PHBS2006US16467

PATIENT
  Age: 31 Year
  Sex: Female

DRUGS (17)
  1. CYCLOSPORINE [Suspect]
     Indication: BONE MARROW TRANSPLANT
  2. BUSULFAN [Concomitant]
  3. CYCLOPHOSPHAMIDE [Concomitant]
     Dosage: 120 MG/KG/DAY
  4. ANTITHYMOCYTE IMMUNOGLOBULIN [Concomitant]
     Dosage: 90 MG/KG/DAY
  5. METHOTREXATE [Concomitant]
  6. SULFAMETHOXAZOLE + TRIMETHOPRIM [Concomitant]
  7. FLUCONAZOLE [Concomitant]
  8. ACYCLOVIR [Concomitant]
  9. PREDNISONE TAB [Suspect]
     Indication: GRAFT VERSUS HOST DISEASE
     Dosage: 2 MG/KG/DAY
  10. PREDNISONE TAB [Suspect]
     Dosage: 1 MG/KG/D
  11. ENALAPRIL MALEATE [Concomitant]
     Indication: HYPERTENSIVE CRISIS
  12. MYCOPHENOLATE MOFETIL [Concomitant]
  13. AMLODIPINE [Concomitant]
     Indication: HYPERTENSIVE CRISIS
  14. TACROLIMUS [Suspect]
     Indication: BONE MARROW TRANSPLANT
     Route: 065
  15. TACROLIMUS [Suspect]
     Route: 061
  16. INFLIXIMAB [Concomitant]
     Indication: GRAFT VERSUS HOST DISEASE
  17. CLOBETASOL PROPIONATE [Concomitant]
     Indication: GRAFT VERSUS HOST DISEASE
     Route: 061

REACTIONS (12)
  - BLOOD CREATININE INCREASED [None]
  - BRONCHOPULMONARY ASPERGILLOSIS [None]
  - CONVULSION [None]
  - GRAFT VERSUS HOST DISEASE [None]
  - HYPERTENSIVE CRISIS [None]
  - LUNG INFECTION PSEUDOMONAL [None]
  - MOUTH ULCERATION [None]
  - NOCARDIOSIS [None]
  - RASH [None]
  - RENAL IMPAIRMENT [None]
  - SEPSIS [None]
  - SKIN EXFOLIATION [None]
